FAERS Safety Report 7014915-1 (Version None)
Quarter: 2010Q3

REPORT INFORMATION
  Report Type: 
  Country: None (occurrence: None)
  Receive Date: 20100927
  Receipt Date: 20100129
  Transmission Date: 20110219
  Serious: No
  Sender: FDA-Public Use
  Company Number: US-ASTRAZENECA-2009SE31043

PATIENT
  Age: 890 Month
  Sex: Female
  Weight: 80.3 kg

DRUGS (15)
  1. ARIMIDEX [Suspect]
     Indication: BREAST CANCER
     Route: 048
     Dates: start: 20090703
  2. VICODIN [Concomitant]
     Indication: PAIN
  3. NORFLEX [Concomitant]
     Indication: PAIN
  4. NEURONTIN [Concomitant]
     Indication: NEUROPATHY PERIPHERAL
  5. NEURONTIN [Concomitant]
     Indication: PAIN
  6. LISINOPRIL [Concomitant]
  7. WARFARIN [Concomitant]
  8. LIPITOR [Concomitant]
     Indication: BLOOD CHOLESTEROL
  9. METOPROLOL TARTRATE [Concomitant]
     Indication: HYPERTENSION
  10. ASPIRIN [Concomitant]
     Indication: CARDIOVASCULAR EVENT PROPHYLAXIS
  11. ASCORBIC ACID [Concomitant]
  12. VITAMIN B6 [Concomitant]
     Indication: NEUROPATHY PERIPHERAL
  13. CALCIUM [Concomitant]
     Indication: OSTEOPOROSIS PROPHYLAXIS
  14. POTASSIUM [Concomitant]
  15. CITRUCEL [Concomitant]

REACTIONS (4)
  - ARTHRALGIA [None]
  - GENERAL PHYSICAL CONDITION ABNORMAL [None]
  - HOT FLUSH [None]
  - MYALGIA [None]
